FAERS Safety Report 10549353 (Version 1)
Quarter: 2014Q4

REPORT INFORMATION
  Report Type: Spontaneous
  Country: CA (occurrence: CA)
  Receive Date: 20141028
  Receipt Date: 20141028
  Transmission Date: 20150529
  Serious: Yes (Other)
  Sender: FDA-Public Use
  Company Number: CA-MYLANLABS-2014M1008852

PATIENT
  Age: 52 Year
  Sex: Male

DRUGS (5)
  1. GRANISETRON [Suspect]
     Active Substance: GRANISETRON
     Route: 065
  2. VALPROIC ACID. [Suspect]
     Active Substance: VALPROIC ACID
     Indication: POST-TRAUMATIC EPILEPSY
     Route: 065
  3. OXITRIPTAN [Concomitant]
     Active Substance: OXITRIPTAN
     Indication: POST-TRAUMATIC EPILEPSY
     Route: 065
     Dates: start: 20120404
  4. LEVETIRACETAM. [Suspect]
     Active Substance: LEVETIRACETAM
     Route: 065
     Dates: end: 20120203
  5. CLOBAZAM [Suspect]
     Active Substance: CLOBAZAM
     Indication: POST-TRAUMATIC EPILEPSY
     Route: 065
     Dates: end: 20120203

REACTIONS (3)
  - Somnolence [Recovering/Resolving]
  - Condition aggravated [Recovering/Resolving]
  - Post-anoxic myoclonus [Recovering/Resolving]
